FAERS Safety Report 12693048 (Version 2)
Quarter: 2016Q3

REPORT INFORMATION
  Report Type: Report from Study
  Country: US (occurrence: US)
  Receive Date: 20160829
  Receipt Date: 20160906
  Transmission Date: 20161109
  Serious: Yes (Death, Other)
  Sender: FDA-Public Use
  Company Number: US-BAYER-2016-116912

PATIENT
  Age: 71 Year
  Sex: Male
  Weight: 82.54 kg

DRUGS (25)
  1. STIVARGA [Suspect]
     Active Substance: REGORAFENIB
     Indication: RECTOSIGMOID CANCER STAGE IV
     Dosage: 160 MG, QD (3 WEEKS OFF A WEEK)
     Route: 048
     Dates: start: 2016
  2. DIGOXIN. [Concomitant]
     Active Substance: DIGOXIN
  3. FINASTERIDE. [Concomitant]
     Active Substance: FINASTERIDE
     Dosage: 5 MG DAILY
  4. INSULIN [Concomitant]
     Active Substance: INSULIN NOS
  5. QUETIAPINE. [Concomitant]
     Active Substance: QUETIAPINE
     Dosage: UNK UNK, QD
     Route: 048
  6. LEXAPRO [Concomitant]
     Active Substance: ESCITALOPRAM OXALATE
     Dosage: 120 MG DAILY
  7. KCL [Concomitant]
     Active Substance: POTASSIUM CHLORIDE
  8. ASPIRIN. [Concomitant]
     Active Substance: ASPIRIN
  9. MEGACE [Concomitant]
     Active Substance: MEGESTROL ACETATE
  10. ALPRAZOLAM. [Concomitant]
     Active Substance: ALPRAZOLAM
     Dosage: UNK UNK, QD
     Route: 048
  11. BYSTOLIC [Concomitant]
     Active Substance: NEBIVOLOL HYDROCHLORIDE
     Dosage: 10 MG DAILY
  12. METFORMIN [Concomitant]
     Active Substance: METFORMIN HYDROCHLORIDE
  13. CLOPIDOGREL [Concomitant]
     Active Substance: CLOPIDOGREL BISULFATE
  14. TAMSULOSIN [Concomitant]
     Active Substance: TAMSULOSIN
     Dosage: UNK UNK, QD
     Route: 048
  15. DIGOX [Concomitant]
     Active Substance: DIGOXIN
  16. HYDROCORTISON [HYDROCORTISONE] [Concomitant]
  17. BUMETANIDE. [Concomitant]
     Active Substance: BUMETANIDE
  18. STIVARGA [Suspect]
     Active Substance: REGORAFENIB
     Indication: METASTASES TO BILIARY TRACT
  19. SOTALOL. [Concomitant]
     Active Substance: SOTALOL
     Dosage: 160 TWICE A DAY
  20. SIMVASTATIN. [Concomitant]
     Active Substance: SIMVASTATIN
  21. ESCITALOPRAM OXALATE. [Concomitant]
     Active Substance: ESCITALOPRAM OXALATE
     Route: 048
  22. DOXYCYCLINE MONOHYDRATE [DOXYCYCLINE] [Concomitant]
     Dosage: UNK UNK, BID
     Route: 048
  23. STIVARGA [Suspect]
     Active Substance: REGORAFENIB
     Indication: METASTASES TO LIVER
  24. OXYCODONE [Concomitant]
     Active Substance: OXYCODONE
     Dosage: 5 MG, UNK
  25. HYDROMORPHONE [Concomitant]
     Active Substance: HYDROMORPHONE
     Route: 048

REACTIONS (35)
  - Aspartate aminotransferase increased [None]
  - Hepatic failure [None]
  - Anal polyp [None]
  - Fatigue [None]
  - Gallbladder enlargement [None]
  - Ischaemia [None]
  - Tumour marker increased [None]
  - Alanine aminotransferase increased [None]
  - Asthenia [None]
  - Gallbladder cancer metastatic [None]
  - Hepatotoxicity [None]
  - Coagulation test abnormal [None]
  - Abdominal pain [Recovered/Resolved]
  - Dehydration [None]
  - Muscular weakness [None]
  - Blood albumin decreased [None]
  - Rectosigmoid cancer [Fatal]
  - Malaise [None]
  - Ascites [None]
  - Abdominal distension [None]
  - Neuropathy peripheral [None]
  - Liver palpable [None]
  - Blood pressure diastolic decreased [None]
  - Metastases to biliary tract [Fatal]
  - Metastases to liver [Fatal]
  - Spinal osteoarthritis [None]
  - Ocular icterus [None]
  - Accident [None]
  - Contusion [None]
  - Abdominal tenderness [None]
  - Back pain [None]
  - Atelectasis [None]
  - Rectal polyp [None]
  - Peripheral swelling [None]
  - Oedema peripheral [None]

NARRATIVE: CASE EVENT DATE: 20160608
